FAERS Safety Report 19225719 (Version 2)
Quarter: 2021Q2

REPORT INFORMATION
  Report Type: Spontaneous
  Country: ES (occurrence: ES)
  Receive Date: 20210506
  Receipt Date: 20210511
  Transmission Date: 20210717
  Serious: Yes (Death, Other)
  Sender: FDA-Public Use
  Company Number: ES-BAYER-2021-136316

PATIENT
  Age: 60 Year
  Sex: Male

DRUGS (3)
  1. NEXAVAR [Suspect]
     Active Substance: SORAFENIB
     Indication: HEPATOCELLULAR CARCINOMA
     Dosage: UNK
  2. NIVOLUMAB [Concomitant]
     Active Substance: NIVOLUMAB
     Dosage: 240 MG
     Dates: end: 202003
  3. NEXAVAR [Suspect]
     Active Substance: SORAFENIB
     Indication: HEPATOCELLULAR CARCINOMA
     Dosage: UNK
     Dates: start: 201805, end: 201812

REACTIONS (12)
  - Hepatic failure [Fatal]
  - Thrombocytopenia [None]
  - Gingival bleeding [None]
  - Asthenia [None]
  - Neoplasm [None]
  - Diarrhoea [None]
  - Anaemia [None]
  - Gastric mucosal lesion [None]
  - Venous ligation [None]
  - Pulmonary embolism [None]
  - Dysphonia [None]
  - Upper gastrointestinal haemorrhage [None]

NARRATIVE: CASE EVENT DATE: 201807
